FAERS Safety Report 14198302 (Version 1)
Quarter: 2017Q4

REPORT INFORMATION
  Report Type: Spontaneous
  Country: US (occurrence: US)
  Receive Date: 20171116
  Receipt Date: 20171116
  Transmission Date: 20180321
  Serious: No
  Sender: FDA-Public Use
  Company Number: None

PATIENT
  Sex: Female

DRUGS (1)
  1. NITROFURANTOIN MONO MACRO [Suspect]
     Active Substance: NITROFURANTOIN\NITROFURANTOIN MONOHYDRATE
     Indication: UPPER RESPIRATORY TRACT INFECTION
     Dosage: ?          QUANTITY:1 CAPSULE(S);?
     Route: 048
     Dates: start: 20170908, end: 20170917

REACTIONS (5)
  - Incorrect dose administered [None]
  - Wrong patient received medication [None]
  - Drug dispensing error [None]
  - Drug dispensed to wrong patient [None]
  - Exposure during breast feeding [None]

NARRATIVE: CASE EVENT DATE: 20170908
